FAERS Safety Report 9289480 (Version 1)
Quarter: 2013Q2

REPORT INFORMATION
  Report Type: Report from Study
  Country: US (occurrence: US)
  Receive Date: 20130514
  Receipt Date: 20130514
  Transmission Date: 20140414
  Serious: Yes (Hospitalization, Other)
  Sender: FDA-Public Use
  Company Number: US-US-EMD SERONO, INC.-7195598

PATIENT
  Sex: Male
  Weight: 57 kg

DRUGS (2)
  1. REBIF [Suspect]
     Indication: MULTIPLE SCLEROSIS
     Route: 058
     Dates: start: 20121221, end: 201301
  2. REBIF [Suspect]
     Route: 058
     Dates: start: 201301, end: 20130417

REACTIONS (9)
  - Grand mal convulsion [Recovering/Resolving]
  - Suicidal behaviour [Recovered/Resolved]
  - Depression [Recovered/Resolved]
  - Anxiety [Unknown]
  - Syncope [Recovered/Resolved]
  - Insomnia [Not Recovered/Not Resolved]
  - Stress [Unknown]
  - Pain in extremity [Not Recovered/Not Resolved]
  - Injection site erythema [Unknown]
